FAERS Safety Report 5513107-2 (Version None)
Quarter: 2007Q4

REPORT INFORMATION
  Report Type: 
  Country: None (occurrence: None)
  Receive Date: 20071112
  Receipt Date: 20071109
  Transmission Date: 20080405
  Serious: Yes (Life-Threatening)
  Sender: FDA-Public Use
  Company Number: JP-WYE-H00978407

PATIENT
  Age: 43 Year
  Sex: Male

DRUGS (6)
  1. TAZOCIN [Suspect]
     Indication: INFECTION PROPHYLAXIS
     Dosage: 5 GRAMS DAILY
     Route: 042
     Dates: start: 20071006, end: 20071007
  2. ANTITHROMBIN III [Concomitant]
     Dosage: UNKNOWN
     Dates: start: 20070929
  3. UNASYN [Concomitant]
     Dosage: UNKNOWN
     Dates: start: 20071003
  4. IOPAMIRON [Concomitant]
     Dosage: UNKNOWN
     Dates: start: 20070929
  5. AMBISOME [Suspect]
     Dosage: UNKNOWN
     Route: 041
     Dates: start: 20071001, end: 20071007
  6. FAMOTIDINE [Concomitant]
     Dosage: UNKNOWN
     Dates: start: 20070929, end: 20071007

REACTIONS (1)
  - TOXIC SKIN ERUPTION [None]
